FAERS Safety Report 8352051-2 (Version None)
Quarter: 2012Q2

REPORT INFORMATION
  Report Type: 
  Country: None (occurrence: None)
  Receive Date: 20120511
  Receipt Date: 20120430
  Transmission Date: 20120825
  Serious: Yes (Other)
  Sender: FDA-Public Use
  Company Number: CA-JNJFOC-20120406335

PATIENT
  Sex: Female
  Weight: 104 kg

DRUGS (5)
  1. REMICADE [Suspect]
     Indication: CROHN'S DISEASE
     Route: 042
     Dates: start: 20060620
  2. BENADRYL [Concomitant]
     Indication: PREMEDICATION
     Route: 048
  3. TYLENOL (CAPLET) [Concomitant]
     Indication: PREMEDICATION
     Route: 048
  4. PREDNISONE [Concomitant]
     Route: 065
  5. FLAGYL [Concomitant]
     Route: 065

REACTIONS (3)
  - TONSILLITIS [None]
  - FALL [None]
  - FOOT FRACTURE [None]
